FAERS Safety Report 4292481-1 (Version None)
Quarter: 2004Q1

REPORT INFORMATION
  Report Type: 
  Country: None (occurrence: None)
  Receive Date: 20040211
  Receipt Date: 20040129
  Transmission Date: 20041129
  Serious: Yes (Other)
  Sender: FDA-Public Use
  Company Number: PHNR2004AU00579

PATIENT
  Sex: Male
  Weight: 80 kg

DRUGS (1)
  1. VOLTAREN [Suspect]
     Dosage: 50 MG, QD
     Route: 048
     Dates: start: 20030427, end: 20030503

REACTIONS (1)
  - OEDEMA GENITAL [None]
